FAERS Safety Report 14611882 (Version 11)
Quarter: 2020Q3

REPORT INFORMATION
  Report Type: Report from Study
  Country: US (occurrence: US)
  Receive Date: 20180308
  Receipt Date: 20200902
  Transmission Date: 20201102
  Serious: Yes (Hospitalization)
  Sender: FDA-Public Use
  Company Number: US-ROCHE-2043579

PATIENT
  Age: 57 Year
  Sex: Male
  Weight: 85 kg

DRUGS (203)
  1. ACETAMINOPHEN. [Concomitant]
     Active Substance: ACETAMINOPHEN
     Dates: start: 20141112
  2. ACETAMINOPHEN. [Concomitant]
     Active Substance: ACETAMINOPHEN
     Dates: start: 20150427
  3. ACETAMINOPHEN. [Concomitant]
     Active Substance: ACETAMINOPHEN
     Dates: start: 20130121, end: 20130212
  4. DIPHENHYDRAMINE. [Concomitant]
     Active Substance: DIPHENHYDRAMINE
     Dates: start: 20130601
  5. DIPHENHYDRAMINE. [Concomitant]
     Active Substance: DIPHENHYDRAMINE
     Dates: start: 20151023
  6. DIPHENHYDRAMINE. [Concomitant]
     Active Substance: DIPHENHYDRAMINE
     Dates: start: 20150427
  7. METHYLPREDNISOLONE. [Concomitant]
     Active Substance: METHYLPREDNISOLONE
     Dates: start: 20160907
  8. METHYLPREDNISOLONE. [Concomitant]
     Active Substance: METHYLPREDNISOLONE
     Dates: start: 20131210
  9. METHYLPREDNISOLONE. [Concomitant]
     Active Substance: METHYLPREDNISOLONE
     Dates: start: 20131125
  10. BACLOFEN. [Concomitant]
     Active Substance: BACLOFEN
     Dates: start: 20150115
  11. CIPROFLOXACIN. [Concomitant]
     Active Substance: CIPROFLOXACIN
     Dates: start: 20151002, end: 20151008
  12. FUROSEMIDE. [Concomitant]
     Active Substance: FUROSEMIDE
     Indication: OEDEMA PERIPHERAL
     Dates: start: 20170309, end: 20170315
  13. XARELTO [Concomitant]
     Active Substance: RIVAROXABAN
     Dates: start: 20180809
  14. VANCOMYCIN [Concomitant]
     Active Substance: VANCOMYCIN
     Indication: CELLULITIS
     Dates: start: 20170420, end: 20170507
  15. VALIUM [Concomitant]
     Active Substance: DIAZEPAM
     Indication: ANXIETY
     Dosage: RECEIVED ON 22/APR/2015 AND 28/OCT/2013
     Dates: start: 20121212, end: 20121212
  16. BENADRYL [Concomitant]
     Active Substance: DIPHENHYDRAMINE HYDROCHLORIDE
     Dates: start: 20180807, end: 20180808
  17. BENADRYL [Concomitant]
     Active Substance: DIPHENHYDRAMINE HYDROCHLORIDE
     Dates: start: 20180730, end: 20180730
  18. LEVOFLOXACIN. [Concomitant]
     Active Substance: LEVOFLOXACIN
     Indication: CELLULITIS
     Dates: start: 20171111, end: 20171120
  19. TAMIFLU [Concomitant]
     Active Substance: OSELTAMIVIR PHOSPHATE
     Indication: INFLUENZA
     Dosage: INFLUENZA A
     Dates: start: 20171218, end: 20171222
  20. MICONAZOL [Concomitant]
     Active Substance: MICONAZOLE NITRATE
     Indication: GROIN INFECTION
  21. LIORESAL [Concomitant]
     Active Substance: BACLOFEN
  22. KLOR CON M [Concomitant]
     Active Substance: POTASSIUM CHLORIDE
  23. MICONAZOLE NITRATE. [Concomitant]
     Active Substance: MICONAZOLE NITRATE
     Indication: GROIN INFECTION
     Dosage: 2 APPLICATION
     Dates: start: 20171202
  24. PRADAXA [Concomitant]
     Active Substance: DABIGATRAN ETEXILATE MESYLATE
     Dates: start: 20180202, end: 20180228
  25. OXYCODONE [Concomitant]
     Active Substance: OXYCODONE
     Dates: start: 20180808, end: 20180814
  26. OXYCODONE [Concomitant]
     Active Substance: OXYCODONE
     Dates: start: 20180806, end: 20180806
  27. VERSED [Concomitant]
     Active Substance: MIDAZOLAM HYDROCHLORIDE
     Indication: SEDATIVE THERAPY
     Dates: start: 20180801, end: 20180801
  28. OCRELIZUMAB. [Suspect]
     Active Substance: OCRELIZUMAB
     Indication: PRIMARY PROGRESSIVE MULTIPLE SCLEROSIS
     Dosage: PATIENT RECEIVED SUBSEQUENT DOSES ON 10/JAN/2013, 21/JUN/2013, 09/JUL/2013, 25/NOV/2013, 10/DEC/2013
     Route: 042
     Dates: start: 20121227, end: 20160320
  29. ACETAMINOPHEN. [Concomitant]
     Active Substance: ACETAMINOPHEN
     Dates: start: 20130610
  30. ACETAMINOPHEN. [Concomitant]
     Active Substance: ACETAMINOPHEN
     Dates: start: 20141029
  31. ACETAMINOPHEN. [Concomitant]
     Active Substance: ACETAMINOPHEN
     Dates: start: 20140816, end: 20140816
  32. DIPHENHYDRAMINE. [Concomitant]
     Active Substance: DIPHENHYDRAMINE
     Dates: start: 20130709
  33. DIPHENHYDRAMINE. [Concomitant]
     Active Substance: DIPHENHYDRAMINE
     Dates: start: 20131210
  34. DIPHENHYDRAMINE. [Concomitant]
     Active Substance: DIPHENHYDRAMINE
     Dates: start: 20151014
  35. DIPHENHYDRAMINE. [Concomitant]
     Active Substance: DIPHENHYDRAMINE
     Dates: start: 20170316
  36. METHYLPREDNISOLONE. [Concomitant]
     Active Substance: METHYLPREDNISOLONE
     Dates: start: 20150415
  37. METHYLPREDNISOLONE. [Concomitant]
     Active Substance: METHYLPREDNISOLONE
     Dates: start: 20151023
  38. METHYLPREDNISOLONE. [Concomitant]
     Active Substance: METHYLPREDNISOLONE
     Dates: start: 20160927
  39. BACLOFEN. [Concomitant]
     Active Substance: BACLOFEN
     Indication: MUSCLE SPASTICITY
     Dates: start: 20060601, end: 20130125
  40. FAMOTIDINE. [Concomitant]
     Active Substance: FAMOTIDINE
     Dates: start: 20160425, end: 20160428
  41. XANAX [Concomitant]
     Active Substance: ALPRAZOLAM
     Dates: start: 20131210, end: 20131210
  42. XARELTO [Concomitant]
     Active Substance: RIVAROXABAN
     Indication: DEEP VEIN THROMBOSIS
     Dates: start: 20171123
  43. ZOLPIDEM TARTRATE. [Concomitant]
     Active Substance: ZOLPIDEM TARTRATE
     Indication: INSOMNIA
     Dates: start: 20160425, end: 20160429
  44. SOMA [Concomitant]
     Active Substance: CARISOPRODOL
     Dates: start: 20160623, end: 20161123
  45. SOLU?CORTEF [Concomitant]
     Active Substance: HYDROCORTISONE SODIUM SUCCINATE
     Dates: start: 20140816, end: 20140816
  46. SODIUM CHLORIDE. [Concomitant]
     Active Substance: SODIUM CHLORIDE
     Dosage: PATIENT RECEIVED ON 26/OCT/2016, 25/APR/2016, 20/APR/2017, 16/AUG/2014
     Dates: start: 20161027, end: 20161027
  47. METAMUCIL [Concomitant]
     Active Substance: PLANTAGO SEED
     Indication: DIARRHOEA
  48. LIORESAL [Concomitant]
     Active Substance: BACLOFEN
     Route: 048
  49. FENTANYL. [Concomitant]
     Active Substance: FENTANYL
     Indication: UROSEPSIS
     Dates: start: 20180801, end: 20180801
  50. MIRALAX [Concomitant]
     Active Substance: POLYETHYLENE GLYCOL 3350
     Dates: start: 20181101, end: 20181101
  51. DILAUDID [Concomitant]
     Active Substance: HYDROMORPHONE HYDROCHLORIDE
     Dates: start: 20180803, end: 20180803
  52. DILAUDID [Concomitant]
     Active Substance: HYDROMORPHONE HYDROCHLORIDE
     Dates: start: 20180803, end: 20180806
  53. KLOR?CON [Concomitant]
     Active Substance: POTASSIUM CHLORIDE
     Indication: HYPOKALAEMIA
     Dates: start: 20180729, end: 20180729
  54. OCRELIZUMAB. [Suspect]
     Active Substance: OCRELIZUMAB
     Indication: PRIMARY PROGRESSIVE MULTIPLE SCLEROSIS
     Dosage: SUBSEQUENTLY RECEIVED ON 01/APR/2016 (260 ML), 07/SEP/2016 (260 ML), 27/SEP/2016 (260 ML), 16/FEB/20
     Route: 042
     Dates: start: 20160321
  55. ACETAMINOPHEN. [Concomitant]
     Active Substance: ACETAMINOPHEN
     Indication: ABDOMINAL PAIN
     Dates: start: 20160401
  56. DIPHENHYDRAMINE. [Concomitant]
     Active Substance: DIPHENHYDRAMINE
     Dates: start: 20131125
  57. DIPHENHYDRAMINE. [Concomitant]
     Active Substance: DIPHENHYDRAMINE
     Dates: start: 20160907
  58. DIPHENHYDRAMINE. [Concomitant]
     Active Substance: DIPHENHYDRAMINE
     Dates: start: 20141029
  59. METHYLPREDNISOLONE. [Concomitant]
     Active Substance: METHYLPREDNISOLONE
     Dates: start: 20130709
  60. METHYLPREDNISOLONE. [Concomitant]
     Active Substance: METHYLPREDNISOLONE
     Dates: start: 20141112
  61. METHYLPREDNISOLONE. [Concomitant]
     Active Substance: METHYLPREDNISOLONE
     Dates: start: 20140527
  62. BACLOFEN. [Concomitant]
     Active Substance: BACLOFEN
     Dates: start: 20130126, end: 20140526
  63. VITAMIN D3 [Concomitant]
     Active Substance: CHOLECALCIFEROL
     Dates: start: 19980101, end: 20140816
  64. VITAMIN D3 [Concomitant]
     Active Substance: CHOLECALCIFEROL
     Dates: start: 20170307
  65. VITAMIN C [Concomitant]
     Active Substance: ASCORBIC ACID
     Dates: start: 20130101, end: 20140816
  66. METAMUCIL [Concomitant]
     Active Substance: PLANTAGO SEED
     Indication: CONSTIPATION
  67. POTASSIUM CHLORIDE. [Concomitant]
     Active Substance: POTASSIUM CHLORIDE
  68. BENADRYL [Concomitant]
     Active Substance: DIPHENHYDRAMINE HYDROCHLORIDE
     Dates: start: 20171202, end: 20180111
  69. BENADRYL [Concomitant]
     Active Substance: DIPHENHYDRAMINE HYDROCHLORIDE
     Dates: start: 20180805, end: 20180805
  70. LEVAQUIN [Concomitant]
     Active Substance: LEVOFLOXACIN
     Indication: CELLULITIS
     Dates: start: 20171111
  71. TAMSULOSIN [Concomitant]
     Active Substance: TAMSULOSIN
     Indication: BENIGN PROSTATIC HYPERPLASIA
  72. FLOMAX [Concomitant]
     Active Substance: TAMSULOSIN HYDROCHLORIDE
     Route: 048
  73. PRADAXA [Concomitant]
     Active Substance: DABIGATRAN ETEXILATE MESYLATE
     Dosage: LEFT DVT AND CLOTTING PREVENTION
     Dates: start: 20180103, end: 20180201
  74. FENTANYL. [Concomitant]
     Active Substance: FENTANYL
     Dates: start: 20140816, end: 20140817
  75. GADAVIST [Concomitant]
     Active Substance: GADOBUTROL
     Indication: ASTHENIA
     Dates: start: 20180728
  76. ISOVUE 370 [Concomitant]
     Active Substance: IOPAMIDOL
     Indication: ASTHENIA
     Dates: start: 20180728, end: 20180728
  77. ACETAMINOPHEN. [Concomitant]
     Active Substance: ACETAMINOPHEN
     Dates: start: 20140513
  78. ACETAMINOPHEN. [Concomitant]
     Active Substance: ACETAMINOPHEN
     Dates: start: 20150415
  79. ACETAMINOPHEN. [Concomitant]
     Active Substance: ACETAMINOPHEN
     Dates: start: 20160927
  80. DIPHENHYDRAMINE. [Concomitant]
     Active Substance: DIPHENHYDRAMINE
     Dates: start: 20170905
  81. DIPHENHYDRAMINE. [Concomitant]
     Active Substance: DIPHENHYDRAMINE
     Dates: start: 20170216
  82. METHYLPREDNISOLONE. [Concomitant]
     Active Substance: METHYLPREDNISOLONE
     Dates: start: 20170316
  83. METHYLPREDNISOLONE. [Concomitant]
     Active Substance: METHYLPREDNISOLONE
     Dates: start: 20130621
  84. METHYLPREDNISOLONE. [Concomitant]
     Active Substance: METHYLPREDNISOLONE
     Dates: start: 20150427
  85. CITALOPRAM [Concomitant]
     Active Substance: CITALOPRAM HYDROBROMIDE
     Indication: DEPRESSION
     Dates: start: 20170417
  86. ENOXAPARIN [Concomitant]
     Active Substance: ENOXAPARIN
     Dates: start: 20130130, end: 20130212
  87. LASIX [Concomitant]
     Active Substance: FUROSEMIDE
     Indication: OEDEMA PERIPHERAL
     Dates: start: 20170911, end: 20171224
  88. XARELTO [Concomitant]
     Active Substance: RIVAROXABAN
     Dates: start: 20171124, end: 20171222
  89. XARELTO [Concomitant]
     Active Substance: RIVAROXABAN
     Dates: start: 20171108, end: 20171123
  90. TYLENOL [Concomitant]
     Active Substance: ACETAMINOPHEN
  91. TESTIM [Concomitant]
     Active Substance: TESTOSTERONE
     Dates: start: 20140427, end: 20140812
  92. SOLU?CORTEF [Concomitant]
     Active Substance: HYDROCORTISONE SODIUM SUCCINATE
     Dates: start: 20140817, end: 20140817
  93. OMEGA 3 [Concomitant]
     Active Substance: OMEGA-3 FATTY ACIDS
  94. AMBIEN [Concomitant]
     Active Substance: ZOLPIDEM TARTRATE
  95. KEFLEX [Concomitant]
     Active Substance: CEPHALEXIN
     Indication: CELLULITIS
     Dates: start: 20171130, end: 20171202
  96. OXYGEN. [Concomitant]
     Active Substance: OXYGEN
     Indication: RESPIRATORY FAILURE
     Dosage: 3 OTHER, LITERS
     Dates: start: 20171218, end: 20171221
  97. TRIMETHOPRIM. [Concomitant]
     Active Substance: TRIMETHOPRIM
     Indication: CELLULITIS
     Dates: start: 20171106, end: 20171111
  98. HYDROCORTISONE. [Concomitant]
     Active Substance: HYDROCORTISONE
     Route: 061
  99. NIZORAL [Concomitant]
     Active Substance: KETOCONAZOLE
     Route: 061
  100. PREDNISONE. [Concomitant]
     Active Substance: PREDNISONE
     Indication: RASH
     Dates: start: 20180103, end: 20180108
  101. ALBUTEROL. [Concomitant]
     Active Substance: ALBUTEROL
     Indication: RESPIRATORY FAILURE
     Dates: start: 20171218
  102. OXYCODONE [Concomitant]
     Active Substance: OXYCODONE
     Dates: start: 20180803, end: 20180809
  103. MERREM [Concomitant]
     Active Substance: MEROPENEM
     Dates: start: 20180803, end: 20180809
  104. ACETAMINOPHEN. [Concomitant]
     Active Substance: ACETAMINOPHEN
     Dates: start: 20160907
  105. ACETAMINOPHEN. [Concomitant]
     Active Substance: ACETAMINOPHEN
     Dates: start: 20151014
  106. ACETAMINOPHEN. [Concomitant]
     Active Substance: ACETAMINOPHEN
     Dates: start: 20130621
  107. ACETAMINOPHEN. [Concomitant]
     Active Substance: ACETAMINOPHEN
     Dates: start: 20180730, end: 20180805
  108. DIPHENHYDRAMINE. [Concomitant]
     Active Substance: DIPHENHYDRAMINE
     Dates: start: 20160401
  109. DIPHENHYDRAMINE. [Concomitant]
     Active Substance: DIPHENHYDRAMINE
     Dates: start: 20121227
  110. METHYLPREDNISOLONE. [Concomitant]
     Active Substance: METHYLPREDNISOLONE
     Dates: start: 20130610
  111. METHYLPREDNISOLONE. [Concomitant]
     Active Substance: METHYLPREDNISOLONE
     Dates: start: 20140513
  112. METHYLPREDNISOLONE. [Concomitant]
     Active Substance: METHYLPREDNISOLONE
     Dates: start: 20170216
  113. METHYLPREDNISOLONE. [Concomitant]
     Active Substance: METHYLPREDNISOLONE
     Dates: start: 20131115
  114. METHYLPREDNISOLONE. [Concomitant]
     Active Substance: METHYLPREDNISOLONE
     Dates: start: 20141029
  115. BACLOFEN. [Concomitant]
     Active Substance: BACLOFEN
     Dates: start: 20150115
  116. FAMOTIDINE. [Concomitant]
     Active Substance: FAMOTIDINE
     Dates: start: 20160420, end: 20170519
  117. IBUPROFEN. [Concomitant]
     Active Substance: IBUPROFEN
     Dates: start: 20130125, end: 20130129
  118. UNASYN [Concomitant]
     Active Substance: AMPICILLIN SODIUM\SULBACTAM SODIUM
     Dates: start: 20130123, end: 20130124
  119. AMBIEN [Concomitant]
     Active Substance: ZOLPIDEM TARTRATE
     Dosage: INDUCE SLEEP
     Dates: start: 20171106, end: 20171221
  120. CELEXA [Concomitant]
     Active Substance: CITALOPRAM HYDROBROMIDE
     Route: 048
  121. XARELTO [Concomitant]
     Active Substance: RIVAROXABAN
     Dosage: TOTAL 30 TABLETS
     Route: 048
  122. BACTROBAN [Concomitant]
     Active Substance: MUPIROCIN\MUPIROCIN CALCIUM
     Indication: DECUBITUS ULCER
     Dates: start: 20180809
  123. FENTANYL. [Concomitant]
     Active Substance: FENTANYL
     Dates: start: 20180803, end: 20180803
  124. CEFDINIR. [Concomitant]
     Active Substance: CEFDINIR
     Indication: URINARY TRACT INFECTION
     Dates: start: 20181102, end: 20181116
  125. MAGNESIUM SULFATE. [Concomitant]
     Active Substance: MAGNESIUM SULFATE
     Dates: start: 20180804
  126. CHOLECALCIFEROL [Concomitant]
     Active Substance: CHOLECALCIFEROL
     Dosage: 500 UNITS
     Dates: start: 20180728
  127. ACETAMINOPHEN. [Concomitant]
     Active Substance: ACETAMINOPHEN
     Dates: start: 20170316
  128. ACETAMINOPHEN. [Concomitant]
     Active Substance: ACETAMINOPHEN
     Dates: start: 20181028, end: 20181028
  129. DIPHENHYDRAMINE. [Concomitant]
     Active Substance: DIPHENHYDRAMINE
     Dates: start: 20151001
  130. DIPHENHYDRAMINE. [Concomitant]
     Active Substance: DIPHENHYDRAMINE
     Dates: start: 20150415
  131. AQUAPHOR (UNITED STATES) [Concomitant]
     Indication: OEDEMA PERIPHERAL
     Dosage: 1 (OTHER APPLICATION)
     Dates: start: 20170309
  132. BACLOFEN. [Concomitant]
     Active Substance: BACLOFEN
     Dates: start: 20140817, end: 20140817
  133. BACLOFEN. [Concomitant]
     Active Substance: BACLOFEN
     Dates: start: 20140818, end: 20150114
  134. BACLOFEN. [Concomitant]
     Active Substance: BACLOFEN
     Dates: start: 20140527, end: 20140816
  135. CIPROFLOXACIN. [Concomitant]
     Active Substance: CIPROFLOXACIN
     Dates: start: 20140819, end: 20140901
  136. IBUPROFEN. [Concomitant]
     Active Substance: IBUPROFEN
     Dates: start: 20130129, end: 20130212
  137. LASIX [Concomitant]
     Active Substance: FUROSEMIDE
  138. VANCOMYCIN [Concomitant]
     Active Substance: VANCOMYCIN
     Dates: start: 20171106, end: 20171106
  139. TYLENOL [Concomitant]
     Active Substance: ACETAMINOPHEN
     Indication: MYALGIA
     Dates: start: 20161103, end: 20161116
  140. BENADRYL [Concomitant]
     Active Substance: DIPHENHYDRAMINE HYDROCHLORIDE
     Indication: CELLULITIS
     Dosage: FOR ALLERGIC RESPONSE TO KEFLEX
     Dates: start: 20171202, end: 20180101
  141. BENADRYL [Concomitant]
     Active Substance: DIPHENHYDRAMINE HYDROCHLORIDE
     Indication: CELLULITIS
     Dates: start: 20171123, end: 20171201
  142. LEVAQUIN [Concomitant]
     Active Substance: LEVOFLOXACIN
     Dates: start: 20180802, end: 20180802
  143. LEVOFLOXACIN. [Concomitant]
     Active Substance: LEVOFLOXACIN
     Dates: start: 20181028, end: 20181031
  144. OXYGEN. [Concomitant]
     Active Substance: OXYGEN
     Indication: BRONCHITIS
  145. KETOCONAZOL [Concomitant]
     Active Substance: KETOCONAZOLE
     Indication: SEBORRHOEIC DERMATITIS
     Dosage: 2% SHAMPOO ?1 APPLICATION
     Dates: start: 20171202, end: 20171217
  146. SULFAMYLON [Concomitant]
     Active Substance: MAFENIDE ACETATE
     Indication: CELLULITIS
     Dosage: 85MG/G
     Route: 061
     Dates: start: 20170307, end: 20170315
  147. LOVENOX [Concomitant]
     Active Substance: ENOXAPARIN SODIUM
     Indication: THROMBOSIS PROPHYLAXIS
     Dates: start: 20180728, end: 20180805
  148. OXYCODONE [Concomitant]
     Active Substance: OXYCODONE
     Dates: start: 20181031, end: 20181101
  149. CEFAZOLIN [Concomitant]
     Active Substance: CEFAZOLIN
     Dates: start: 20180731, end: 20180801
  150. ATIVAN [Concomitant]
     Active Substance: LORAZEPAM
     Dates: start: 20180801, end: 20180809
  151. LOPRESSOR [Concomitant]
     Active Substance: METOPROLOL TARTRATE
     Indication: HYPERTENSION
     Dates: start: 20180813
  152. SILVADENE [Concomitant]
     Active Substance: SILVER SULFADIAZINE
     Dates: start: 20181101
  153. ACETAMINOPHEN. [Concomitant]
     Active Substance: ACETAMINOPHEN
     Dates: start: 20151001
  154. ACETAMINOPHEN. [Concomitant]
     Active Substance: ACETAMINOPHEN
     Dates: start: 20170901
  155. ACETAMINOPHEN. [Concomitant]
     Active Substance: ACETAMINOPHEN
     Dates: start: 20131210
  156. ACETAMINOPHEN. [Concomitant]
     Active Substance: ACETAMINOPHEN
     Dates: start: 20170216
  157. ACETAMINOPHEN. [Concomitant]
     Active Substance: ACETAMINOPHEN
     Dates: start: 20121227
  158. ACETAMINOPHEN. [Concomitant]
     Active Substance: ACETAMINOPHEN
     Dates: start: 20140527
  159. ACETAMINOPHEN. [Concomitant]
     Active Substance: ACETAMINOPHEN
     Dates: start: 20160426, end: 20160428
  160. DIPHENHYDRAMINE. [Concomitant]
     Active Substance: DIPHENHYDRAMINE
     Dates: start: 20140513
  161. DIPHENHYDRAMINE. [Concomitant]
     Active Substance: DIPHENHYDRAMINE
     Dates: start: 20160321
  162. DIPHENHYDRAMINE. [Concomitant]
     Active Substance: DIPHENHYDRAMINE
     Dates: start: 20140527
  163. METHYLPREDNISOLONE. [Concomitant]
     Active Substance: METHYLPREDNISOLONE
     Dates: start: 20170905
  164. ADVIL [Concomitant]
     Active Substance: IBUPROFEN
     Indication: UPPER RESPIRATORY TRACT INFECTION
     Dates: start: 20150731, end: 20150810
  165. ADVIL [Concomitant]
     Active Substance: IBUPROFEN
     Dates: start: 20181010
  166. LASIX [Concomitant]
     Active Substance: FUROSEMIDE
     Dosage: WITH BREAKFAST
     Route: 042
  167. XANAX [Concomitant]
     Active Substance: ALPRAZOLAM
     Indication: ANXIETY
     Dates: start: 20140121
  168. VITAMIN C [Concomitant]
     Active Substance: ASCORBIC ACID
     Dates: start: 20140817
  169. VANCOMYCIN [Concomitant]
     Active Substance: VANCOMYCIN
     Dates: start: 20171202, end: 20171208
  170. TORADOL [Concomitant]
     Active Substance: KETOROLAC TROMETHAMINE
     Indication: ARTHRALGIA
     Dates: start: 20130123, end: 20130128
  171. GARLIC. [Concomitant]
     Active Substance: GARLIC
  172. KEFLEX [Concomitant]
     Active Substance: CEPHALEXIN
     Indication: CELLULITIS
     Dates: start: 20171130, end: 20171202
  173. KEFLEX [Concomitant]
     Active Substance: CEPHALEXIN
     Dates: start: 20180802, end: 20180803
  174. NORMAL SALINE [Concomitant]
     Active Substance: SODIUM CHLORIDE
     Dosage: HYPOVOLEMIC HYPONATREMIA
     Dates: start: 20171218, end: 20171218
  175. SULFAMETHOXAZOLE [Concomitant]
     Active Substance: SULFAMETHOXAZOLE
     Indication: CELLULITIS
     Dates: start: 20171106, end: 20171111
  176. PEPCID [Concomitant]
     Active Substance: FAMOTIDINE
     Route: 042
  177. FENTANYL. [Concomitant]
     Active Substance: FENTANYL
     Indication: URINARY TRACT INFECTION
     Dates: start: 20180806, end: 20180815
  178. OXYCODONE [Concomitant]
     Active Substance: OXYCODONE
     Dates: start: 20181102, end: 20181102
  179. OXYCODONE [Concomitant]
     Active Substance: OXYCODONE
     Dates: start: 20180809, end: 20180814
  180. REBIF [Concomitant]
     Active Substance: INTERFERON BETA-1A
     Indication: MULTIPLE SCLEROSIS
     Dates: start: 20181001, end: 20181009
  181. VITAMIN A AND D [Concomitant]
     Active Substance: LANOLIN\PETROLATUM
     Dates: start: 20181101, end: 20181102
  182. ACETAMINOPHEN. [Concomitant]
     Active Substance: ACETAMINOPHEN
     Dates: start: 20130709
  183. ACETAMINOPHEN. [Concomitant]
     Active Substance: ACETAMINOPHEN
     Dates: start: 20160321
  184. ACETAMINOPHEN. [Concomitant]
     Active Substance: ACETAMINOPHEN
     Dates: start: 20151023
  185. DIPHENHYDRAMINE. [Concomitant]
     Active Substance: DIPHENHYDRAMINE
     Dates: start: 20141112
  186. DIPHENHYDRAMINE. [Concomitant]
     Active Substance: DIPHENHYDRAMINE
     Dates: start: 20130621
  187. DIPHENHYDRAMINE. [Concomitant]
     Active Substance: DIPHENHYDRAMINE
     Dates: start: 20160927
  188. METHYLPREDNISOLONE. [Concomitant]
     Active Substance: METHYLPREDNISOLONE
     Dates: start: 20160401
  189. METHYLPREDNISOLONE. [Concomitant]
     Active Substance: METHYLPREDNISOLONE
     Dates: start: 20151001
  190. ENOXAPARIN [Concomitant]
     Active Substance: ENOXAPARIN
     Dates: start: 20130126, end: 20130129
  191. FUROSEMIDE. [Concomitant]
     Active Substance: FUROSEMIDE
     Dates: start: 20170316, end: 20170417
  192. ZOSYN [Concomitant]
     Active Substance: PIPERACILLIN SODIUM\TAZOBACTAM SODIUM
     Dates: start: 20140816, end: 20140818
  193. VANCOMYCIN [Concomitant]
     Active Substance: VANCOMYCIN
     Indication: CELLULITIS
     Dates: start: 20140816, end: 20140817
  194. VANCOMYCIN [Concomitant]
     Active Substance: VANCOMYCIN
     Route: 042
  195. DORYX (UNITED STATES) [Concomitant]
     Dosage: 20 TABLETS
     Route: 048
     Dates: start: 20171208, end: 20171218
  196. AMOXICILLIN. [Concomitant]
     Active Substance: AMOXICILLIN
     Indication: URINARY TRACT INFECTION
     Dates: start: 20181028, end: 20181102
  197. OXYCODONE [Concomitant]
     Active Substance: OXYCODONE
     Dates: start: 20180730, end: 20180805
  198. OXYCODONE [Concomitant]
     Active Substance: OXYCODONE
     Dates: start: 20181028, end: 20181030
  199. OXYCODONE [Concomitant]
     Active Substance: OXYCODONE
     Dates: start: 20181028, end: 20181102
  200. POTASSIUM CLAVULANATE [Concomitant]
     Active Substance: CLAVULANATE POTASSIUM
     Indication: URINARY TRACT INFECTION
     Dates: start: 20181028, end: 20181102
  201. REBIF [Concomitant]
     Active Substance: INTERFERON BETA-1A
     Dates: start: 20181010
  202. VANCOMYCIN [Concomitant]
     Active Substance: VANCOMYCIN
     Dates: start: 20180728, end: 20180728
  203. SILVADENE [Concomitant]
     Active Substance: SILVER SULFADIAZINE
     Dates: start: 20180730, end: 20180807

REACTIONS (2)
  - Sepsis [Recovered/Resolved]
  - Cellulitis [Recovered/Resolved with Sequelae]

NARRATIVE: CASE EVENT DATE: 20171202
